FAERS Safety Report 6446894-X (Version None)
Quarter: 2009Q4

REPORT INFORMATION
  Report Type: 
  Country: None (occurrence: None)
  Receive Date: 20091110
  Receipt Date: 20090918
  Transmission Date: 20100525
  Serious: Yes (Hospitalization)
  Sender: FDA-Public Use
  Company Number: 1000008599

PATIENT
  Age: 56 Year
  Sex: Female

DRUGS (15)
  1. SAVELLA [Suspect]
     Indication: FIBROMYALGIA
     Dosage: ORAL; 100 MG (50 MG; 2-IN 1 D),ORAL; 25 MG (25 MG,1 IN 1 D), ORAL
     Route: 048
     Dates: start: 20090101, end: 20090101
  2. SAVELLA [Suspect]
     Indication: FIBROMYALGIA
     Dosage: ORAL; 100 MG (50 MG; 2-IN 1 D),ORAL; 25 MG (25 MG,1 IN 1 D), ORAL
     Route: 048
     Dates: start: 20090101, end: 20090801
  3. SAVELLA [Suspect]
     Indication: FIBROMYALGIA
     Dosage: ORAL; 100 MG (50 MG; 2-IN 1 D),ORAL; 25 MG (25 MG,1 IN 1 D), ORAL
     Route: 048
     Dates: start: 20090801, end: 20090801
  4. SAVELLA [Suspect]
     Indication: FIBROMYALGIA
     Dosage: 12.5 MG (12.5 MG, 1 IN 1 D), ORAL
     Route: 048
     Dates: start: 20090801, end: 20090801
  5. TRAMADOL HCL [Suspect]
     Dosage: 800 MG (200 MG,4 IN 1 AS REQUIRED),ORAL
     Route: 048
  6. TOPAMAX (75 MILLIGRAM, TABLETS) [Concomitant]
  7. ESTRATEST [Concomitant]
  8. PRUNELAX (TABLETS) [Concomitant]
  9. MELATONIN (5 MILLIGRAM, TABLETS) [Concomitant]
  10. ACETAMINOPHEN (500 MILLIGRAM, TABLETS) [Concomitant]
  11. ZANAFLEX (4 MILLIGRAM, TABLETS) [Concomitant]
  12. FLUTICASONE(NASAL DROPS (INCLUDING NASAL SPRAY) [Concomitant]
  13. LIDOCAINE (5 PERCENT, TRANSDERMAL) [Concomitant]
  14. VAGIFEM (TABLETS) [Concomitant]
  15. RHINARIS(GEL) [Concomitant]

REACTIONS (7)
  - CHEST DISCOMFORT [None]
  - CHEST PAIN [None]
  - DRUG INTERACTION [None]
  - HEADACHE [None]
  - HYPERHIDROSIS [None]
  - HYPERTENSION [None]
  - SEROTONIN SYNDROME [None]
